FAERS Safety Report 5075991-9 (Version None)
Quarter: 2006Q3

REPORT INFORMATION
  Report Type: 
  Country: None (occurrence: None)
  Receive Date: 20060714
  Receipt Date: 20060525
  Transmission Date: 20061208
  Serious: No
  Sender: FDA-Public Use
  Company Number: 2006SP002194

PATIENT
  Age: 33 Year
  Sex: Female
  Weight: 74.8435 kg

DRUGS (9)
  1. LUNESTA [Suspect]
     Indication: INSOMNIA
     Dosage: 2 MG;HS;ORAL
     Route: 047
     Dates: start: 20060501
  2. NEURONTIN [Concomitant]
  3. PHENYTOIN [Concomitant]
  4. KLONOPIN [Concomitant]
  5. PROZAC [Concomitant]
  6. TOPAMAX [Concomitant]
  7. TRAMADOL HCL [Concomitant]
  8. HYDROCHLOROTHIAZIDE [Concomitant]
  9. PRILOSEC [Concomitant]

REACTIONS (4)
  - HYPERHIDROSIS [None]
  - INSOMNIA [None]
  - PRURITUS [None]
  - RASH [None]
